FAERS Safety Report 8517444-9 (Version None)
Quarter: 2012Q3

REPORT INFORMATION
  Report Type: 
  Country: None (occurrence: None)
  Receive Date: 20120718
  Receipt Date: 20120711
  Transmission Date: 20120928
  Serious: Yes (Other)
  Sender: FDA-Public Use
  Company Number: US-ROCHE-1056137

PATIENT
  Sex: Male
  Weight: 99.88 kg

DRUGS (4)
  1. ACCUTANE [Suspect]
     Indication: ACNE
     Dates: start: 20040901, end: 20051201
  2. ACCUTANE [Suspect]
     Dates: start: 20050415, end: 20051020
  3. ATENOLOL [Concomitant]
     Indication: HYPERTENSION
  4. ZYRTEC [Concomitant]

REACTIONS (5)
  - IRRITABLE BOWEL SYNDROME [None]
  - CROHN'S DISEASE [None]
  - INFLAMMATORY BOWEL DISEASE [None]
  - COLITIS ULCERATIVE [None]
  - INTESTINAL OBSTRUCTION [None]
